FAERS Safety Report 9807666 (Version 2)
Quarter: 2014Q1

REPORT INFORMATION
  Report Type: Report from Study
  Country: US (occurrence: US)
  Receive Date: 20140110
  Receipt Date: 20140110
  Transmission Date: 20141002
  Serious: Yes (Hospitalization)
  Sender: FDA-Public Use
  Company Number: US-ROCHE-782749

PATIENT
  Age: 60 Year
  Sex: Female
  Weight: 40 kg

DRUGS (6)
  1. VISMODEGIB [Suspect]
     Indication: SMALL CELL LUNG CANCER
     Route: 048
  2. VISMODEGIB [Suspect]
     Route: 048
  3. CISPLATIN [Suspect]
     Indication: SMALL CELL LUNG CANCER
     Dosage: IV OVER 2 HRS ON DAY 1.
     Route: 042
  4. CISPLATIN [Suspect]
     Dosage: TOTAL DOSE: 100 MG
     Route: 042
  5. ETOPOSIDE [Suspect]
     Indication: SMALL CELL LUNG CANCER
     Dosage: IV OVER 2 HRS ON DAY 1-3.
     Route: 042
  6. ETOPOSIDE [Suspect]
     Dosage: TOTAL DOSE: 133 MG
     Route: 042

REACTIONS (4)
  - Lung infection [Recovered/Resolved]
  - Decreased appetite [Unknown]
  - Dehydration [Unknown]
  - Fracture [Recovered/Resolved]
